FAERS Safety Report 8600328 (Version 3)
Quarter: 2014Q1

REPORT INFORMATION
  Report Type: Spontaneous
  Country: US (occurrence: US)
  Receive Date: 20120606
  Receipt Date: 20140130
  Transmission Date: 20141002
  Serious: Yes (Other)
  Sender: FDA-Public Use
  Company Number: US-ASTRAZENECA-2012SE35418

PATIENT
  Sex: Female

DRUGS (9)
  1. NEXIUM [Suspect]
     Indication: DYSPEPSIA
     Dosage: EVERY DAY
     Route: 048
  2. NEXIUM [Suspect]
     Indication: DYSPEPSIA
     Route: 048
     Dates: start: 20111003
  3. FORTAX [Concomitant]
     Indication: GASTRIC DISORDER
     Dosage: FOR TWO YEARS
  4. CRESTOR [Concomitant]
  5. TOPROL XL [Concomitant]
  6. PLAVIX [Concomitant]
  7. VICODIN [Concomitant]
  8. METOPROLOL [Concomitant]
     Dates: start: 20111003
  9. MELOXICAM [Concomitant]
     Dates: start: 20111017

REACTIONS (4)
  - Bone disorder [Unknown]
  - Osteoporosis [Unknown]
  - Rib fracture [Unknown]
  - Multiple fractures [Unknown]
